FAERS Safety Report 22372951 (Version 1)
Quarter: 2023Q2

REPORT INFORMATION
  Report Type: Spontaneous
  Country: SG (occurrence: None)
  Receive Date: 20230526
  Receipt Date: 20230526
  Transmission Date: 20230722
  Serious: Yes (Other)
  Sender: FDA-Public Use
  Company Number: SG-ROCHE-3355076

PATIENT
  Sex: Female

DRUGS (1)
  1. PERJETA [Suspect]
     Active Substance: PERTUZUMAB
     Indication: Breast cancer
     Route: 065

REACTIONS (7)
  - Metastatic neoplasm [Unknown]
  - Herpes zoster [Unknown]
  - Pruritus [Unknown]
  - Asthenia [Unknown]
  - Feeling hot [Unknown]
  - Erythema [Unknown]
  - Hypersensitivity [Unknown]
